FAERS Safety Report 9297865 (Version 1)
Quarter: 2013Q2

REPORT INFORMATION
  Report Type: Spontaneous
  Country: US (occurrence: US)
  Receive Date: 20130520
  Receipt Date: 20130520
  Transmission Date: 20140414
  Serious: Yes (Other)
  Sender: FDA-Public Use
  Company Number: US-JNJFOC-20130505595

PATIENT
  Age: 50 Year
  Sex: Female
  Weight: 71.22 kg

DRUGS (10)
  1. STELARA [Suspect]
     Indication: PSORIASIS
     Route: 058
     Dates: start: 201303
  2. ZETIA [Concomitant]
     Indication: BLOOD CHOLESTEROL
     Route: 048
     Dates: start: 2009
  3. CLOBETASOL [Concomitant]
     Indication: PSORIASIS
     Dates: start: 2012
  4. CLOBETASOL PROPIONATE [Concomitant]
     Indication: PSORIASIS
     Route: 061
     Dates: start: 2012
  5. BUPROPION HCL [Concomitant]
     Indication: GASTROOESOPHAGEAL REFLUX DISEASE
     Route: 048
     Dates: start: 2010
  6. GABAPENTIN [Concomitant]
     Indication: RESTLESS LEGS SYNDROME
     Dosage: 1 IN AM AND 2 IN PM
     Route: 048
     Dates: start: 2010
  7. AMITRIPTYLINE HCL [Concomitant]
     Indication: HEADACHE
     Dosage: 2 AT NIGHT
     Route: 048
     Dates: start: 201303
  8. LYRICA [Concomitant]
     Indication: NEUROPATHY PERIPHERAL
     Dosage: 2 AT NIGHT
     Route: 048
     Dates: start: 2010
  9. CARBAMAZEPINE [Concomitant]
     Indication: BIPOLAR DISORDER
     Dosage: 1 IN AM 2 IN PM
     Route: 048
     Dates: start: 2012
  10. CLONAZEPAM [Concomitant]
     Indication: BIPOLAR DISORDER
     Route: 048
     Dates: start: 2008

REACTIONS (7)
  - Meniscus injury [Recovered/Resolved]
  - Ligament rupture [Recovered/Resolved]
  - Fall [Unknown]
  - Arthritis [Unknown]
  - Arthropathy [Unknown]
  - Drug ineffective [Not Recovered/Not Resolved]
  - Alopecia [Not Recovered/Not Resolved]
